FAERS Safety Report 7499116-5 (Version None)
Quarter: 2011Q2

REPORT INFORMATION
  Report Type: 
  Country: None (occurrence: None)
  Receive Date: 20110524
  Receipt Date: 20110217
  Transmission Date: 20111010
  Serious: No
  Sender: FDA-Public Use
  Company Number: US-NOVEN-11US001807

PATIENT
  Sex: Female

DRUGS (3)
  1. DAYTRANA [Suspect]
     Indication: TRAUMATIC BRAIN INJURY
     Dosage: 30 MG, QD
     Route: 062
     Dates: start: 20101001
  2. EFFEXOR [Concomitant]
     Indication: PRODUCT USED FOR UNKNOWN INDICATION
     Dosage: UNK
     Route: 048
  3. DAYTRANA [Suspect]
     Indication: DISTURBANCE IN ATTENTION

REACTIONS (5)
  - APPLICATION SITE ERYTHEMA [None]
  - APPLICATION SITE PAIN [None]
  - OFF LABEL USE [None]
  - APPLICATION SITE WARMTH [None]
  - APPLICATION SITE SWELLING [None]
